FAERS Safety Report 4488375-9 (Version None)
Quarter: 2004Q4

REPORT INFORMATION
  Report Type: 
  Country: None (occurrence: None)
  Receive Date: 20041026
  Receipt Date: 20041011
  Transmission Date: 20050328
  Serious: Yes (Hospitalization)
  Sender: FDA-Public Use
  Company Number: 170843

PATIENT
  Age: 51 Year
  Sex: Female

DRUGS (3)
  1. AVONEX [Suspect]
     Indication: MULTIPLE SCLEROSIS
     Dosage: 30 MCG QW IM
     Route: 030
     Dates: start: 20020511
  2. DITROPAN [Concomitant]
  3. PROPANTHELINE BROMIDE [Concomitant]

REACTIONS (3)
  - ANKLE FRACTURE [None]
  - FALL [None]
  - JOINT SPRAIN [None]
